FAERS Safety Report 5382655-0 (Version None)
Quarter: 2007Q3

REPORT INFORMATION
  Report Type: 
  Country: None (occurrence: None)
  Receive Date: 20070703
  Receipt Date: 20070703
  Transmission Date: 20080115
  Serious: Yes (Hospitalization)
  Sender: FDA-Public Use
  Company Number: None

PATIENT
  Sex: Male
  Weight: 77.27 kg

DRUGS (2)
  1. ATIVAN [Suspect]
     Dosage: 1MG 6H IV
     Route: 042
     Dates: start: 20070601, end: 20070601
  2. HETASTARCH 6% IN 0.9% SODIUM CHLORIDE IN PLASTIC CONTAINER [Suspect]
     Dosage: 500 ML BOLUS IV
     Route: 042

REACTIONS (6)
  - ILL-DEFINED DISORDER [None]
  - MUSCLE RIGIDITY [None]
  - TACHYCARDIA [None]
  - TACHYPNOEA [None]
  - TENSION [None]
  - WHEEZING [None]
